FAERS Safety Report 4440763-2 (Version None)
Quarter: 2004Q3

REPORT INFORMATION
  Report Type: 
  Country: None (occurrence: None)
  Receive Date: 20040826
  Receipt Date: 20040812
  Transmission Date: 20050211
  Serious: Yes (Hospitalization)
  Sender: FDA-Public Use
  Company Number: 600537

PATIENT
  Age: 41 Year
  Sex: Male
  Weight: 77 kg

DRUGS (7)
  1. POLYGAM S/D [Suspect]
     Indication: NEUROPATHY
     Dosage: 30 GM;QD;INTRAVENOUS
     Route: 042
     Dates: start: 20021021, end: 20021025
  2. NEURONTIN [Concomitant]
  3. ZOLOFT [Concomitant]
  4. AMARYL [Concomitant]
  5. METFORMIN HCL [Concomitant]
  6. PROAMATINE [Concomitant]
  7. FLUDROCORTISONE ACETATE [Concomitant]

REACTIONS (3)
  - ASTHENIA [None]
  - INFUSION RELATED REACTION [None]
  - THROMBOPHLEBITIS SUPERFICIAL [None]
